FAERS Safety Report 10872139 (Version 1)
Quarter: 2015Q1

REPORT INFORMATION
  Report Type: Spontaneous
  Country: DE (occurrence: DE)
  Receive Date: 20150226
  Receipt Date: 20150226
  Transmission Date: 20150721
  Serious: Yes (Other)
  Sender: FDA-Public Use
  Company Number: DE-NGX_02567_2014

PATIENT
  Sex: Female

DRUGS (6)
  1. QUTENZA [Suspect]
     Active Substance: CAPSAICIN
     Indication: COMPLEX REGIONAL PAIN SYNDROME
     Dosage: DF, [CUTANEOUS PATCH]
     Route: 062
     Dates: start: 201403, end: 201403
  2. OXYCODON [Concomitant]
     Active Substance: OXYCODONE
     Indication: COMPLEX REGIONAL PAIN SYNDROME
     Dosage: 35 MG, QD
     Route: 065
     Dates: start: 201402, end: 201407
  3. OXYCODON [Concomitant]
     Active Substance: OXYCODONE
     Dosage: 60 MG, QD
     Route: 065
     Dates: start: 201407
  4. AMITRIPTYLINE HCL [Concomitant]
     Active Substance: AMITRIPTYLINE
     Indication: COMPLEX REGIONAL PAIN SYNDROME
     Dosage: UNK
     Route: 065
     Dates: start: 201402
  5. AMITRIPTYLINE HCL [Concomitant]
     Active Substance: AMITRIPTYLINE
     Dosage: UNK
     Route: 065
     Dates: start: 201306, end: 201402
  6. QUTENZA [Suspect]
     Active Substance: CAPSAICIN
     Dosage: DF, [CUTANEOUS PATCH]
     Route: 062
     Dates: start: 201407, end: 201407

REACTIONS (5)
  - Condition aggravated [Not Recovered/Not Resolved]
  - Application site pain [Not Recovered/Not Resolved]
  - Complex regional pain syndrome [Not Recovered/Not Resolved]
  - Drug ineffective [Unknown]
  - Product use issue [Recovered/Resolved]

NARRATIVE: CASE EVENT DATE: 201403
